FAERS Safety Report 8992376 (Version 2)
Quarter: 2013Q2

REPORT INFORMATION
  Report Type: Report from Study
  Country: US (occurrence: US)
  Receive Date: 20121231
  Receipt Date: 20130412
  Transmission Date: 20140414
  Serious: No
  Sender: FDA-Public Use
  Company Number: US-VERTEX PHARMACEUTICALS INC.-2012-026766

PATIENT
  Age: 57 Year
  Sex: Male
  Weight: 78 kg

DRUGS (11)
  1. VX-950 (TELAPREVIR) [Suspect]
     Indication: HEPATITIS C
     Dosage: 750 MG, TID
     Route: 048
     Dates: start: 201211
  2. RIBAVIRIN [Suspect]
     Indication: HEPATITIS C
     Dosage: 200 MG, UNK
     Route: 048
  3. PEGASYS [Suspect]
     Indication: HEPATITIS C
     Route: 058
  4. ZOFRAN [Concomitant]
     Dosage: 8 MG, UNK
     Route: 048
  5. RANITIDINE [Concomitant]
     Dosage: 300 MG, UNK
     Route: 048
  6. TRAZODONE [Concomitant]
     Dosage: 50 MG, UNK
     Route: 048
  7. DRONABINOL [Concomitant]
     Dosage: 10 MG, UNK
     Route: 048
  8. MEGESTROL ACETATE [Concomitant]
     Dosage: 20 MG, UNK
     Route: 048
  9. FOLIC ACID [Concomitant]
     Route: 048
  10. VITAMIN B12 [Concomitant]
     Dosage: 500 ?G, UNK
     Route: 048
  11. CALCIUM [Concomitant]
     Dosage: 500 MG, UNK
     Route: 048

REACTIONS (7)
  - Influenza like illness [Unknown]
  - Anxiety [Unknown]
  - Pyrexia [Unknown]
  - Lethargy [Unknown]
  - Rash [Unknown]
  - Nausea [Unknown]
  - Diarrhoea [Unknown]
